FAERS Safety Report 11425158 (Version 1)
Quarter: 2015Q3

REPORT INFORMATION
  Report Type: Spontaneous
  Country: US (occurrence: US)
  Receive Date: 20150821
  Receipt Date: 20150821
  Transmission Date: 20151125
  Serious: No
  Sender: FDA-Public Use
  Company Number: US-ELI_LILLY_AND_COMPANY-US201302008621

PATIENT
  Age: 50 Year
  Sex: Female

DRUGS (2)
  1. HUMULIN R [Suspect]
     Active Substance: INSULIN HUMAN
     Dosage: 400 U, QID
  2. HUMULIN R [Suspect]
     Active Substance: INSULIN HUMAN
     Indication: INSULIN-REQUIRING TYPE 2 DIABETES MELLITUS
     Dosage: 200 U, TID

REACTIONS (5)
  - Wrong technique in product usage process [Unknown]
  - Hyperglycaemia [Unknown]
  - Congenital generalised lipodystrophy [Unknown]
  - Lipodystrophy acquired [Unknown]
  - Diabetic neuropathy [Unknown]
